FAERS Safety Report 4599222-9 (Version None)
Quarter: 2005Q1

REPORT INFORMATION
  Report Type: 
  Country: None (occurrence: None)
  Receive Date: 20050127
  Receipt Date: 20041207
  Transmission Date: 20050727
  Serious: No
  Sender: FDA-Public Use
  Company Number: USA041082495

PATIENT
  Sex: Female
  Weight: 64 kg

DRUGS (1)
  1. STRATTERA [Suspect]
     Indication: ATTENTION DEFICIT/HYPERACTIVITY DISORDER
     Dosage: 25 MG
     Dates: start: 20041027

REACTIONS (9)
  - APPETITE DISORDER [None]
  - BLOOD PRESSURE INCREASED [None]
  - COORDINATION ABNORMAL [None]
  - HYPERHIDROSIS [None]
  - NAUSEA [None]
  - NIGHT SWEATS [None]
  - OROPHARYNGEAL SWELLING [None]
  - PRURITUS [None]
  - SOMNOLENCE [None]
